FAERS Safety Report 23703130 (Version 1)
Quarter: 2024Q2

REPORT INFORMATION
  Report Type: Report from Study
  Country: US (occurrence: US)
  Receive Date: 20240403
  Receipt Date: 20240403
  Transmission Date: 20240715
  Serious: Yes (Hospitalization, Congenital Anomaly)
  Sender: FDA-Public Use
  Company Number: US-AMGEN-USANI2024063929

PATIENT
  Age: 35 Year
  Sex: Male

DRUGS (6)
  1. EVOLOCUMAB [Suspect]
     Active Substance: EVOLOCUMAB
     Indication: Hypercholesterolaemia
     Dosage: UNK
     Route: 065
  2. EVOLOCUMAB [Suspect]
     Active Substance: EVOLOCUMAB
     Dosage: DOSE INCREASED
     Route: 065
  3. EZETIMIBE AND SIMVASTATIN [Concomitant]
     Active Substance: EZETIMIBE\SIMVASTATIN
     Dosage: UNK
  4. GEMFIBROZIL [Concomitant]
     Active Substance: GEMFIBROZIL
  5. FENOFIBRATE [Concomitant]
     Active Substance: FENOFIBRATE
  6. BEMPEDOIC ACID [Concomitant]
     Active Substance: BEMPEDOIC ACID

REACTIONS (2)
  - Seizure [Recovering/Resolving]
  - Dizziness [Recovering/Resolving]

NARRATIVE: CASE EVENT DATE: 20240310
